FAERS Safety Report 14220553 (Version 2)
Quarter: 2017Q4

REPORT INFORMATION
  Report Type: Report from Study
  Country: US (occurrence: US)
  Receive Date: 20171124
  Receipt Date: 20171208
  Transmission Date: 20180321
  Serious: Yes (Other)
  Sender: FDA-Public Use
  Company Number: US-AMGEN-USASL2017174990

PATIENT
  Age: 44 Year
  Sex: Female
  Weight: 49.43 kg

DRUGS (2)
  1. REPATHA [Suspect]
     Active Substance: EVOLOCUMAB
     Indication: TYPE IIA HYPERLIPIDAEMIA
     Dosage: 140 MG, Q2WK
     Route: 065
     Dates: start: 201703, end: 20171001
  2. REPATHA [Suspect]
     Active Substance: EVOLOCUMAB
     Indication: TYPE IIA HYPERLIPIDAEMIA

REACTIONS (13)
  - Pain [Unknown]
  - Rhinorrhoea [Unknown]
  - Abnormal dreams [Recovering/Resolving]
  - Dyspnoea [Unknown]
  - Stress [Recovering/Resolving]
  - Insomnia [Unknown]
  - Influenza like illness [Unknown]
  - Fatigue [Unknown]
  - Injection site urticaria [Unknown]
  - Chest pain [Unknown]
  - Depressed mood [Recovering/Resolving]
  - Nightmare [Unknown]
  - Back pain [Unknown]

NARRATIVE: CASE EVENT DATE: 2017
